FAERS Safety Report 10585563 (Version 12)
Quarter: 2016Q2

REPORT INFORMATION
  Report Type: Spontaneous
  Country: CA (occurrence: CA)
  Receive Date: 20141114
  Receipt Date: 20160606
  Transmission Date: 20160815
  Serious: Yes (Hospitalization, Other)
  Sender: FDA-Public Use
  Company Number: CA-GSKJP-KK201408067GSK1550188SC003

PATIENT
  Age: 55 Year
  Sex: Female
  Weight: 82 kg

DRUGS (16)
  1. NEURONTIN [Concomitant]
     Active Substance: GABAPENTIN
     Dosage: UNK, 600 MG MORNING 400 AFTERNOON 800 MG NIGHT
  2. GRAVOL [Concomitant]
     Active Substance: DIMENHYDRINATE
     Indication: PRODUCT USED FOR UNKNOWN INDICATION
     Dosage: UNK
  3. BENLYSTA [Suspect]
     Active Substance: BELIMUMAB
     Dosage: 810 MG AT WEEK 0, 2, 4 THAN EVERY 4 WEEKS
     Route: 042
     Dates: start: 20140327
  4. CORTISONE [Suspect]
     Active Substance: CORTISONE\HYDROCORTISONE
     Indication: PRODUCT USED FOR UNKNOWN INDICATION
     Dosage: UNK
  5. PREDNISONE. [Suspect]
     Active Substance: PREDNISONE
     Indication: PRODUCT USED FOR UNKNOWN INDICATION
     Dosage: 50 MG, UNK, AT BEDTIME( HS)
     Dates: start: 20151227
  6. BENLYSTA [Suspect]
     Active Substance: BELIMUMAB
     Indication: SYSTEMIC LUPUS ERYTHEMATOSUS
     Dosage: AT WEEK 0, 2, 4 THAN EVERY 4 WEEKS
     Route: 042
     Dates: start: 20140327
  7. FENTANYL TEVA [Suspect]
     Active Substance: FENTANYL
     Indication: PAIN
     Dosage: 9 MG, UNK
  8. BENLYSTA [Suspect]
     Active Substance: BELIMUMAB
     Dosage: UNK
     Route: 042
     Dates: start: 20140327
  9. METHOTREXATE [Suspect]
     Active Substance: METHOTREXATE
     Indication: PRODUCT USED FOR UNKNOWN INDICATION
     Dosage: UNK
  10. PREDNISONE. [Suspect]
     Active Substance: PREDNISONE
     Dosage: 50 MG, UNK, AM
     Dates: start: 20151228
  11. BENLYSTA [Suspect]
     Active Substance: BELIMUMAB
     Dosage: 810 MG, UNK
     Route: 042
  12. CELLCEPT [Suspect]
     Active Substance: MYCOPHENOLATE MOFETIL\MYCOPHENOLATE MOFETIL HYDROCHLORIDE
     Indication: PRODUCT USED FOR UNKNOWN INDICATION
     Dosage: UNK
  13. PREDNISONE. [Suspect]
     Active Substance: PREDNISONE
     Dosage: 50 MG, UNK, AM
     Dates: start: 20151230
  14. PLAQUENIL [Suspect]
     Active Substance: HYDROXYCHLOROQUINE SULFATE
     Indication: PRODUCT USED FOR UNKNOWN INDICATION
     Dosage: UNK
     Dates: start: 2001, end: 201511
  15. NEURONTIN [Concomitant]
     Active Substance: GABAPENTIN
     Indication: CENTRAL NERVOUS SYSTEM INFLAMMATION
     Dosage: 400 MG, 1D
     Route: 048
     Dates: start: 2014
  16. NEURONTIN [Concomitant]
     Active Substance: GABAPENTIN
     Indication: PAIN
     Dosage: UNK, 500MG IN THE MORNING AND 500MG IN THE AFTERNOON AND 800MG AT NIGHT

REACTIONS (49)
  - Neck pain [Unknown]
  - Visual acuity reduced [Recovering/Resolving]
  - Blood glucose increased [Unknown]
  - Drug effect decreased [Unknown]
  - Incorrect dose administered [Unknown]
  - Feeling hot [Not Recovered/Not Resolved]
  - Fatigue [Unknown]
  - Sleep apnoea syndrome [Unknown]
  - Astigmatism [Unknown]
  - Musculoskeletal pain [Unknown]
  - Insomnia [Unknown]
  - Dizziness [Not Recovered/Not Resolved]
  - Kidney infection [Recovered/Resolved]
  - Sepsis [Unknown]
  - Weight decreased [Unknown]
  - Fall [Unknown]
  - Gastrointestinal disorder [Recovering/Resolving]
  - Irritable bowel syndrome [Recovering/Resolving]
  - Pain in extremity [Unknown]
  - Pruritus [Not Recovered/Not Resolved]
  - Arthralgia [Unknown]
  - Adverse drug reaction [Unknown]
  - Malaise [Unknown]
  - Visual impairment [Recovering/Resolving]
  - Gastric disorder [Recovering/Resolving]
  - Oropharyngeal discomfort [Not Recovered/Not Resolved]
  - Upper respiratory tract congestion [Not Recovered/Not Resolved]
  - Hot flush [Unknown]
  - Knee operation [Not Recovered/Not Resolved]
  - Stress [Unknown]
  - Pain [Unknown]
  - Nasal congestion [Unknown]
  - Asthenia [Unknown]
  - Head discomfort [Not Recovered/Not Resolved]
  - Balance disorder [Unknown]
  - Arthritis [Unknown]
  - Nausea [Unknown]
  - Eye laser surgery [Unknown]
  - Sinusitis [Unknown]
  - Nephrolithiasis [Unknown]
  - Hypnotherapy [Unknown]
  - Raynaud^s phenomenon [Unknown]
  - Activities of daily living impaired [Unknown]
  - Cataract [Recovering/Resolving]
  - Vision blurred [Unknown]
  - Toxicity to various agents [Unknown]
  - Hypersomnia [Unknown]
  - Urinary tract infection [Unknown]
  - Headache [Unknown]

NARRATIVE: CASE EVENT DATE: 20140327
